FAERS Safety Report 15774283 (Version 1)
Quarter: 2018Q4

REPORT INFORMATION
  Report Type: Spontaneous
  Country: US (occurrence: US)
  Receive Date: 20181229
  Receipt Date: 20181229
  Transmission Date: 20190205
  Serious: Yes (Death, Hospitalization, Other)
  Sender: FDA-Public Use
  Company Number: US-AUROBINDO-AUR-APL-2018-063741

PATIENT
  Age: 46 Year
  Sex: Female

DRUGS (1)
  1. DIVALPROEX [Suspect]
     Active Substance: DIVALPROEX SODIUM
     Indication: PRODUCT USED FOR UNKNOWN INDICATION
     Route: 048

REACTIONS (8)
  - Drug level increased [Fatal]
  - Pyrexia [Fatal]
  - Coma [Fatal]
  - Seizure [Fatal]
  - Overdose [Fatal]
  - Muscle spasticity [Fatal]
  - Hypotension [Fatal]
  - Completed suicide [Fatal]
